FAERS Safety Report 8758347 (Version 1)
Quarter: 2012Q4

REPORT INFORMATION
  Report Type: 
  Country: FR (occurrence: FR)
  Receive Date: 20120829
  Receipt Date: 20120829
  Transmission Date: 20130627
  Serious: Yes (Death, Hospitalization, Other)
  Sender: FDA-Public Use
  Company Number: FR-ELI_LILLY_AND_COMPANY-FR201208001539

PATIENT
  Age: 69 Year
  Sex: Male

DRUGS (11)
  1. ALIMTA [Suspect]
     Dosage: 1000 mg, UNK
     Route: 042
     Dates: start: 20120224
  2. CISPLATINE [Concomitant]
     Dosage: 150 mg, UNK
     Dates: start: 20120224
  3. ATACAND [Concomitant]
  4. INEXIUM [Concomitant]
  5. PREVISCAN [Concomitant]
  6. BURINEX [Concomitant]
  7. SELOKEN [Concomitant]
     Dosage: UNK
  8. CORDARONE [Concomitant]
  9. HEMIGOXINE NATIVELLE [Concomitant]
  10. EFFERALGAN CODEINE [Concomitant]
  11. CARBOPLATINE [Concomitant]
     Dosage: UNK
     Dates: start: 20120329

REACTIONS (11)
  - Death [Fatal]
  - Renal failure acute [Recovering/Resolving]
  - Pericardial drainage [Unknown]
  - Dyspnoea [Unknown]
  - Insomnia [Unknown]
  - Asthenia [Unknown]
  - Nausea [Unknown]
  - Decreased appetite [Unknown]
  - Weight decreased [Unknown]
  - Headache [Unknown]
  - Vertigo [Unknown]
